FAERS Safety Report 9852442 (Version 2)
Quarter: 2014Q1

REPORT INFORMATION
  Report Type: Spontaneous
  Country: US (occurrence: None)
  Receive Date: 20140127
  Receipt Date: 20140207
  Transmission Date: 20141002
  Serious: Yes (Hospitalization)
  Sender: FDA-Public Use
  Company Number: AUR-APL-2014-00529

PATIENT
  Age: 73 Year
  Sex: Male

DRUGS (2)
  1. CLINDAMYCIN (CLINDAMYCIN) [Suspect]
     Indication: PNEUMONIA ASPIRATION
     Route: 048
  2. CLINDAMYCIN (CLINDAMYCIN) [Suspect]
     Indication: PNEUMONIA ASPIRATION
     Dosage: 1200 MG (600 MG, 2 IN 1 D), INTRAVENOUS
     Route: 042

REACTIONS (9)
  - Acute hepatic failure [None]
  - Abdominal discomfort [None]
  - Confusional state [None]
  - Decreased appetite [None]
  - Nausea [None]
  - Fatigue [None]
  - Encephalopathy [None]
  - Liver injury [None]
  - Acute respiratory distress syndrome [None]
